FAERS Safety Report 5459500-8 (Version None)
Quarter: 2007Q3

REPORT INFORMATION
  Report Type: 
  Country: None (occurrence: None)
  Receive Date: 20070919
  Receipt Date: 20070913
  Transmission Date: 20080115
  Serious: Yes (Other)
  Sender: FDA-Public Use
  Company Number: B0482186A

PATIENT
  Sex: Female

DRUGS (2)
  1. LAMOTRIGINE [Suspect]
     Indication: EPILEPSY
     Route: 048
  2. KLACID UNO [Suspect]
     Indication: BRONCHITIS
     Route: 048
     Dates: start: 20070730

REACTIONS (2)
  - CONVULSION [None]
  - DRUG INTERACTION [None]
